FAERS Safety Report 7115910-4 (Version None)
Quarter: 2010Q4

REPORT INFORMATION
  Report Type: 
  Country: None (occurrence: None)
  Receive Date: 20101122
  Receipt Date: 20101110
  Transmission Date: 20110411
  Serious: Yes (Disabling)
  Sender: FDA-Public Use
  Company Number: DE-SANOFI-AVENTIS-2010SA065395

PATIENT
  Age: 59 Year
  Sex: Male
  Weight: 80 kg

DRUGS (5)
  1. MULTAQ [Suspect]
     Indication: ATRIAL FIBRILLATION
     Route: 048
     Dates: start: 20100813
  2. ACETYLSALICYLIC ACID [Concomitant]
     Indication: ATRIAL FIBRILLATION
     Route: 048
     Dates: start: 20100801
  3. RAMIPRIL/HYDROCHLOROTHIAZIDE [Concomitant]
     Indication: HYPERTENSION
     Dosage: DOSAGE: 1/2 TABLET OF 5/25 MG
     Route: 048
     Dates: start: 20100801
  4. DONA [Concomitant]
     Route: 048
     Dates: start: 20100801
  5. GALACORDIN FORTE [Concomitant]
     Indication: ATRIAL FIBRILLATION
     Route: 048
     Dates: start: 20100801

REACTIONS (4)
  - BRADYCARDIA [None]
  - HYPOTONIA [None]
  - MUSCULAR WEAKNESS [None]
  - VERTIGO POSITIONAL [None]
